FAERS Safety Report 13511463 (Version 5)
Quarter: 2019Q3

REPORT INFORMATION
  Report Type: Report from Study
  Country: GB (occurrence: US)
  Receive Date: 20170504
  Receipt Date: 20190924
  Transmission Date: 20191004
  Serious: Yes (Other)
  Sender: FDA-Public Use
  Company Number: US-ASTELLAS-2017US016488

PATIENT
  Age: 59 Year
  Sex: Female
  Weight: 45 kg

DRUGS (7)
  1. HYDROXYZINE HCL [Concomitant]
     Active Substance: HYDROXYZINE HYDROCHLORIDE
     Indication: PRODUCT USED FOR UNKNOWN INDICATION
     Dosage: UNK UNK, UNKNOWN FREQ.
     Route: 048
  2. ERLOTINIB [Suspect]
     Active Substance: ERLOTINIB
     Indication: BRONCHIAL CARCINOMA
     Dosage: 150 MG, ONCE DAILY (EVENING)
     Route: 048
     Dates: start: 20150303, end: 20150303
  3. ERLOTINIB [Suspect]
     Active Substance: ERLOTINIB
     Route: 048
     Dates: start: 20160701
  4. ERLOTINIB [Suspect]
     Active Substance: ERLOTINIB
     Dosage: 150 MG, ONCE DAILY (EVENING)
     Route: 048
     Dates: start: 20150304
  5. ERLOTINIB [Suspect]
     Active Substance: ERLOTINIB
     Dosage: UNK UNK, UNKNOWN FREQ.
     Route: 048
     Dates: start: 20150326
  6. FLUZONE INTRADERMAL [Concomitant]
     Active Substance: INFLUENZA A VIRUS A/CALIFORNIA/7/2009 X-179A (H1N1) ANTIGEN (FORMALDEHYDE INACTIVATED)\INFLUENZA A VIRUS A/VICTORIA/210/2009 X-187 (H3N2) ANTIGEN (FORMALDEHYDE INACTIVATED)\INFLUENZA B VIRUS B/BRISBANE/60/2008 ANTIGEN (FORMALDEHYDE INACTIVATED)
     Indication: PRODUCT USED FOR UNKNOWN INDICATION
     Dosage: UNK UNK, UNKNOWN FREQ.
     Route: 030
     Dates: start: 20170224
  7. ERLOTINIB [Suspect]
     Active Substance: ERLOTINIB
     Indication: LUNG NEOPLASM MALIGNANT
     Dosage: 150 MG, ONCE DAILY (EVENING)
     Route: 048
     Dates: start: 20150302, end: 20150302

REACTIONS (13)
  - Rash [Unknown]
  - Pruritus generalised [Unknown]
  - Pain [Unknown]
  - Skin disorder [Unknown]
  - Diarrhoea [Unknown]
  - Erythema [Unknown]
  - Asthenia [Unknown]
  - Fatigue [Unknown]
  - Vision blurred [Not Recovered/Not Resolved]
  - Eczema [Unknown]
  - Decreased appetite [Unknown]
  - Pruritus [Unknown]
  - Rash erythematous [Not Recovered/Not Resolved]

NARRATIVE: CASE EVENT DATE: 20170315
